FAERS Safety Report 21369106 (Version 1)
Quarter: 2022Q3

REPORT INFORMATION
  Report Type: Spontaneous
  Country: IT (occurrence: IT)
  Receive Date: 20220923
  Receipt Date: 20220923
  Transmission Date: 20221026
  Serious: Yes (Death, Other)
  Sender: FDA-Public Use
  Company Number: IT-SUN PHARMACEUTICAL INDUSTRIES LTD-2020R1-243159

PATIENT
  Age: 39 Year
  Sex: Female

DRUGS (3)
  1. PALIPERIDONE [Suspect]
     Active Substance: PALIPERIDONE
     Indication: Bipolar disorder
     Dosage: 100 MILLIGRAM, 1DOSE/4WEEKS
     Route: 065
  2. LAMOTRIGINE [Concomitant]
     Active Substance: LAMOTRIGINE
     Indication: Product used for unknown indication
     Dosage: 25 MILLIGRAM, BID
     Route: 048
  3. CLONAZEPAM [Concomitant]
     Active Substance: CLONAZEPAM
     Indication: Product used for unknown indication
     Dosage: 1 MILLIGRAM, TID
     Route: 048

REACTIONS (1)
  - Inappropriate antidiuretic hormone secretion [Fatal]
